FAERS Safety Report 6244027-6 (Version None)
Quarter: 2009Q2

REPORT INFORMATION
  Report Type: 
  Country: None (occurrence: None)
  Receive Date: 20090623
  Receipt Date: 20090610
  Transmission Date: 20091009
  Serious: Yes (Other)
  Sender: FDA-Public Use
  Company Number: 2009007031

PATIENT
  Sex: Male

DRUGS (3)
  1. TREANDA [Suspect]
     Indication: CHRONIC LYMPHOCYTIC LEUKAEMIA
     Dosage: INTRAVENOUS
     Route: 042
     Dates: start: 20080915, end: 20081006
  2. PREDNISOLONE [Concomitant]
  3. METOHEXAL (METOPROLOL TARTRATE) [Concomitant]

REACTIONS (3)
  - DERMATITIS ALLERGIC [None]
  - DIARRHOEA [None]
  - DRUG HYPERSENSITIVITY [None]
